FAERS Safety Report 6135537-0 (Version None)
Quarter: 2009Q1

REPORT INFORMATION
  Report Type: 
  Country: None (occurrence: None)
  Receive Date: 20090327
  Receipt Date: 20090319
  Transmission Date: 20090719
  Serious: Yes (Hospitalization)
  Sender: FDA-Public Use
  Company Number: B0566972A

PATIENT
  Sex: Male

DRUGS (3)
  1. AUGMENTIN '125' [Suspect]
     Indication: UROSEPSIS
     Dosage: 2G PER DAY
     Route: 048
     Dates: start: 20090309, end: 20090311
  2. LYRICA [Concomitant]
     Dosage: 150MG PER DAY
     Route: 048
  3. LEXOTAN [Concomitant]
     Route: 048

REACTIONS (3)
  - FACE OEDEMA [None]
  - OEDEMA PERIPHERAL [None]
  - TONGUE OEDEMA [None]
